FAERS Safety Report 6081769-X (Version None)
Quarter: 2009Q1

REPORT INFORMATION
  Report Type: 
  Country: None (occurrence: None)
  Receive Date: 20090213
  Receipt Date: 20090203
  Transmission Date: 20090719
  Serious: Yes (Hospitalization)
  Sender: FDA-Public Use
  Company Number: DSA_33180_2009

PATIENT
  Sex: Male

DRUGS (2)
  1. TEMESTA /00273201/ (LORAZEPAM) (NOT SPECIFIED) [Suspect]
     Indication: DRUG USE FOR UNKNOWN INDICATION
     Dosage: (4 MG QD ORAL)
     Route: 048
     Dates: start: 20090108, end: 20090108
  2. ZYPREXA [Suspect]
     Indication: DRUG USE FOR UNKNOWN INDICATION
     Dosage: (10 MG QD ORAL)
     Route: 048
     Dates: start: 20090108, end: 20090109

REACTIONS (15)
  - ALANINE AMINOTRANSFERASE INCREASED [None]
  - ASPARTATE AMINOTRANSFERASE INCREASED [None]
  - BLOOD ALKALINE PHOSPHATASE DECREASED [None]
  - BLOOD CREATINE PHOSPHOKINASE INCREASED [None]
  - BLOOD CREATINE PHOSPHOKINASE MB INCREASED [None]
  - BLOOD LACTATE DEHYDROGENASE INCREASED [None]
  - CONDUCT DISORDER [None]
  - CONFUSIONAL STATE [None]
  - DISTURBANCE IN ATTENTION [None]
  - DRUG INTERACTION [None]
  - DYSARTHRIA [None]
  - ENURESIS [None]
  - HYPOTENSION [None]
  - LOSS OF CONSCIOUSNESS [None]
  - WRONG DRUG ADMINISTERED [None]
